FAERS Safety Report 6027171-8 (Version None)
Quarter: 2009Q1

REPORT INFORMATION
  Report Type: 
  Country: None (occurrence: None)
  Receive Date: 20090105
  Receipt Date: 20081224
  Transmission Date: 20090719
  Serious: Yes (Hospitalization)
  Sender: FDA-Public Use
  Company Number: DZ-PFIZER INC-2008099393

PATIENT

DRUGS (2)
  1. PREGABALIN [Suspect]
     Indication: NEURALGIA
     Dosage: FREQUENCY: DAILY
     Route: 048
     Dates: start: 20080914, end: 20080928
  2. TEGRETOL [Concomitant]
     Dosage: 400 MG
     Route: 048
     Dates: end: 20080901

REACTIONS (2)
  - DERMATITIS [None]
  - DRUG ERUPTION [None]
